FAERS Safety Report 6380875-X (Version None)
Quarter: 2009Q3

REPORT INFORMATION
  Report Type: 
  Country: None (occurrence: None)
  Receive Date: 20090929
  Receipt Date: 20090922
  Transmission Date: 20100115
  Serious: Yes (Hospitalization)
  Sender: FDA-Public Use
  Company Number: A0809160A

PATIENT
  Age: 64 Year
  Sex: Male

DRUGS (1)
  1. AVANDARYL [Suspect]
     Indication: DIABETES MELLITUS
     Dosage: .5TAB PER DAY
     Route: 048
     Dates: start: 20060901, end: 20070613

REACTIONS (1)
  - ACUTE MYOCARDIAL INFARCTION [None]
